FAERS Safety Report 8110145-0 (Version None)
Quarter: 2012Q1

REPORT INFORMATION
  Report Type: 
  Country: None (occurrence: None)
  Receive Date: 20120202
  Receipt Date: 20120125
  Transmission Date: 20120608
  Serious: No
  Sender: FDA-Public Use
  Company Number: US-AMGEN-USASP2012005258

PATIENT
  Age: 53 Year
  Sex: Male

DRUGS (2)
  1. ENBREL [Suspect]
     Indication: PSORIATIC ARTHROPATHY
     Dosage: 75 MG, QWK
     Dates: start: 20050201
  2. ENBREL [Suspect]
     Indication: PSORIASIS

REACTIONS (2)
  - TYMPANIC MEMBRANE PERFORATION [None]
  - SENSORY LOSS [None]
